FAERS Safety Report 15296348 (Version 2)
Quarter: 2018Q3

REPORT INFORMATION
  Report Type: Spontaneous
  Country: JP (occurrence: JP)
  Receive Date: 20180820
  Receipt Date: 20180824
  Transmission Date: 20181010
  Serious: Yes (Death)
  Sender: FDA-Public Use
  Company Number: JP-PFIZER INC-2018333181

PATIENT
  Age: 28 Year
  Sex: Male

DRUGS (16)
  1. ITRACONAZOLE. [Suspect]
     Active Substance: ITRACONAZOLE
     Indication: FUSARIUM INFECTION
     Dosage: 200 MG, DAILY
     Dates: start: 2013, end: 2013
  2. ITRACONAZOLE. [Suspect]
     Active Substance: ITRACONAZOLE
     Indication: FUSARIUM INFECTION
  3. AMPHOTERICIN B, LIPOSOME [Suspect]
     Active Substance: AMPHOTERICIN B
     Indication: PYREXIA
  4. VORICONAZOLE. [Suspect]
     Active Substance: VORICONAZOLE
     Indication: ANTIFUNGAL PROPHYLAXIS
     Dosage: UNK
  5. AMPHOTERICIN B, LIPOSOME [Suspect]
     Active Substance: AMPHOTERICIN B
     Indication: FUSARIUM INFECTION
     Dosage: 5 MG/KG, DAILY
     Dates: start: 2013, end: 2013
  6. CYCLOPHOSPHAMIDE. [Concomitant]
     Active Substance: CYCLOPHOSPHAMIDE
     Indication: CORD BLOOD TRANSPLANT THERAPY
     Dosage: 50 MG/KG, UNK, (DAY ?6)
     Dates: start: 201310
  7. CYTARABINE. [Concomitant]
     Active Substance: CYTARABINE
     Indication: CENTRAL NERVOUS SYSTEM NEOPLASM
     Dosage: UNK
     Dates: start: 201306
  8. METHOTREXATE. [Concomitant]
     Active Substance: METHOTREXATE
     Dosage: UNK, (HIGH DOSE)
     Route: 037
     Dates: start: 201306
  9. METHOTREXATE. [Concomitant]
     Active Substance: METHOTREXATE
     Indication: CENTRAL NERVOUS SYSTEM NEOPLASM
     Dosage: UNK
     Dates: start: 201306
  10. DEXAMETHASONE. [Concomitant]
     Active Substance: DEXAMETHASONE
     Indication: CENTRAL NERVOUS SYSTEM NEOPLASM
     Dosage: UNK
     Dates: start: 201306
  11. AMPHOTERICIN B, LIPOSOME [Suspect]
     Active Substance: AMPHOTERICIN B
     Indication: FUSARIUM INFECTION
     Dosage: 2.5 MG/KG, DAILY
     Dates: start: 2013, end: 2013
  12. AMPHOTERICIN B, LIPOSOME [Suspect]
     Active Substance: AMPHOTERICIN B
     Indication: ANTIFUNGAL PROPHYLAXIS
  13. MICAFUNGIN [Suspect]
     Active Substance: MICAFUNGIN
     Indication: HEPATIC FUNCTION ABNORMAL
  14. FLUDARABINE [Concomitant]
     Active Substance: FLUDARABINE PHOSPHATE
     Indication: CORD BLOOD TRANSPLANT THERAPY
     Dosage: 40 MG/M2, UNK, (DAY ?6 TO DAY ?2)
     Dates: start: 201310
  15. MICAFUNGIN [Suspect]
     Active Substance: MICAFUNGIN
     Indication: FUSARIUM INFECTION
     Dosage: 150 MG, DAILY
     Dates: start: 2013, end: 2013
  16. MICAFUNGIN [Suspect]
     Active Substance: MICAFUNGIN
     Indication: FUSARIUM INFECTION

REACTIONS (1)
  - Drug ineffective [Fatal]

NARRATIVE: CASE EVENT DATE: 2013
